FAERS Safety Report 10195634 (Version 1)
Quarter: 2014Q2

REPORT INFORMATION
  Report Type: Spontaneous
  Country: GB (occurrence: GB)
  Receive Date: 20140527
  Receipt Date: 20140527
  Transmission Date: 20141212
  Serious: Yes (Hospitalization)
  Sender: FDA-Public Use
  Company Number: GB-ROCHE-1404584

PATIENT
  Age: 48 Year
  Sex: Female
  Weight: 72 kg

DRUGS (4)
  1. ROACTEMRA [Suspect]
     Indication: RHEUMATOID ARTHRITIS
     Route: 042
     Dates: start: 20120314, end: 20140221
  2. AMITRIPTYLINE [Concomitant]
  3. PARACETAMOL [Concomitant]
  4. PREGABALIN [Concomitant]

REACTIONS (7)
  - Confusional state [Not Recovered/Not Resolved]
  - Somnolence [Not Recovered/Not Resolved]
  - Epilepsy [Recovered/Resolved]
  - Headache [Unknown]
  - Dizziness [Unknown]
  - Nausea [Unknown]
  - Convulsion [Recovered/Resolved]
